FAERS Safety Report 14412149 (Version 1)
Quarter: 2018Q1

REPORT INFORMATION
  Report Type: Spontaneous
  Country: US (occurrence: US)
  Receive Date: 20180117
  Receipt Date: 20180117
  Transmission Date: 20180509
  Serious: Yes (Life-Threatening)
  Sender: FDA-Public Use
  Company Number: None

PATIENT
  Age: 72 Year
  Sex: Male
  Weight: 71 kg

DRUGS (3)
  1. ZEMURON [Concomitant]
     Active Substance: ROCURONIUM BROMIDE
  2. SEVOFLURANE. [Suspect]
     Active Substance: SEVOFLURANE
     Indication: GENERAL ANAESTHESIA
     Dosage: ?          OTHER FREQUENCY:ONCE;OTHER ROUTE:INHALATION?
     Route: 055
     Dates: start: 20170831, end: 20170831
  3. ETOMIDATE. [Concomitant]
     Active Substance: ETOMIDATE

REACTIONS (1)
  - Cardiac arrest [None]

NARRATIVE: CASE EVENT DATE: 20170831
